FAERS Safety Report 6824150-5 (Version None)
Quarter: 2010Q3

REPORT INFORMATION
  Report Type: 
  Country: None (occurrence: None)
  Receive Date: 20100708
  Receipt Date: 20061004
  Transmission Date: 20110219
  Serious: No
  Sender: FDA-Public Use
  Company Number: US-PFIZER INC-2006123080

PATIENT
  Sex: Male
  Weight: 68.04 kg

DRUGS (5)
  1. CHANTIX [Suspect]
     Indication: SMOKING CESSATION THERAPY
     Route: 048
     Dates: start: 20060919
  2. TRAVATAN [Concomitant]
     Indication: EYE DISORDER
     Route: 031
  3. TIMOLOL MALEATE [Concomitant]
     Indication: EYE DISORDER
     Route: 031
  4. PRIMIDONE [Concomitant]
     Route: 048
  5. TAMSULOSIN HYDROCHLORIDE [Concomitant]
     Route: 048

REACTIONS (1)
  - INSOMNIA [None]
